FAERS Safety Report 25059063 (Version 2)
Quarter: 2025Q2

REPORT INFORMATION
  Report Type: Spontaneous
  Country: US (occurrence: US)
  Receive Date: 20250310
  Receipt Date: 20250602
  Transmission Date: 20250717
  Serious: No
  Sender: LUPIN
  Company Number: US-LUPIN PHARMACEUTICALS INC.-2025-00106

PATIENT

DRUGS (1)
  1. ORPHENADRINE [Suspect]
     Active Substance: ORPHENADRINE
     Indication: Muscle relaxant therapy
     Dosage: UNK UNK, BID (1 TABLET BY MOUTH 2 TIME A DAY)

REACTIONS (1)
  - Drug ineffective [Unknown]
